FAERS Safety Report 5153642-2 (Version None)
Quarter: 2006Q4

REPORT INFORMATION
  Report Type: 
  Country: None (occurrence: None)
  Receive Date: 20061114
  Receipt Date: 20061031
  Transmission Date: 20070319
  Serious: Yes (Hospitalization, Other)
  Sender: FDA-Public Use
  Company Number: 2006097929

PATIENT
  Age: 71 Year
  Sex: Male
  Weight: 84 kg

DRUGS (7)
  1. NEURONTIN [Suspect]
     Indication: EPILEPSY
     Dosage: 1800 MG (600 MG, 1 D), ORAL
     Route: 048
     Dates: start: 20050401
  2. AMLODIPINE [Concomitant]
  3. RAMIPRIL [Concomitant]
  4. RAMIPRIL [Concomitant]
  5. HYDROCHLOROTHIAZIDE [Concomitant]
  6. ACTONEL [Concomitant]
  7. CALCIUM (CALCIUM) [Concomitant]

REACTIONS (9)
  - DEMENTIA [None]
  - DISEASE RECURRENCE [None]
  - EPILEPSY [None]
  - HYPERTENSION [None]
  - HYPONATRAEMIA [None]
  - NAUSEA [None]
  - SCAR [None]
  - SNORING [None]
  - SOMNOLENCE [None]
